FAERS Safety Report 4786178-9 (Version None)
Quarter: 2005Q3

REPORT INFORMATION
  Report Type: 
  Country: None (occurrence: None)
  Receive Date: 20050930
  Receipt Date: 20050920
  Transmission Date: 20060218
  Serious: Yes (Other)
  Sender: FDA-Public Use
  Company Number: 2005130351

PATIENT
  Age: 29 Year
  Sex: Male
  Weight: 86.1834 kg

DRUGS (1)
  1. VISINE II EYE DROPS [Suspect]
     Indication: ACCIDENTAL EXPOSURE
     Dosage: 1 BOTTLE ONCE, ORAL
     Route: 048
     Dates: start: 20050919, end: 20050919

REACTIONS (3)
  - ACCIDENTAL EXPOSURE [None]
  - BLOOD PRESSURE INCREASED [None]
  - INCORRECT ROUTE OF DRUG ADMINISTRATION [None]
